FAERS Safety Report 17183046 (Version 1)
Quarter: 2019Q4

REPORT INFORMATION
  Report Type: Spontaneous
  Country: ES (occurrence: ES)
  Receive Date: 20191220
  Receipt Date: 20191220
  Transmission Date: 20200122
  Serious: Yes (Hospitalization)
  Sender: FDA-Public Use
  Company Number: ES-TEVA-2019-ES-1153676

PATIENT
  Age: 92 Year
  Sex: Female

DRUGS (6)
  1. DILTIAZEM (3735A) [Concomitant]
     Active Substance: DILTIAZEM
     Dosage: 60MG
     Route: 048
  2. EPLERENONA KERN PHARMA 25 MG COMPRIMIDOS RECUBIERTOS CON PELICULA EFG, [Concomitant]
     Dosage: 25 MG
     Route: 048
  3. SINTROM [Interacting]
     Active Substance: ACENOCOUMAROL
     Indication: ATRIAL FIBRILLATION
     Dosage: SPL
     Route: 048
     Dates: start: 20180601, end: 20180606
  4. SEGURIL 40 MG COMPRIMIDOS , 30 COMPRIMIDOS [Concomitant]
     Active Substance: FUROSEMIDE
     Dosage: 60 MG
     Route: 048
  5. OMEPRAZOL KERN PHARMA 20 MG CAPSULAS DURAS GASTRORRESISTENTES EFG , 28 [Concomitant]
     Dosage: 20 MG
     Route: 048
  6. LEVOFLOXACINO (2791A) [Suspect]
     Active Substance: LEVOFLOXACIN
     Indication: RESPIRATORY TRACT INFECTION
     Dosage: 500 MG
     Route: 048
     Dates: start: 20180601, end: 20180606

REACTIONS (2)
  - Drug interaction [Unknown]
  - Haematoma [Recovering/Resolving]

NARRATIVE: CASE EVENT DATE: 20180606
